FAERS Safety Report 4617293-8 (Version None)
Quarter: 2005Q1

REPORT INFORMATION
  Report Type: 
  Country: None (occurrence: None)
  Receive Date: 20050323
  Receipt Date: 20050317
  Transmission Date: 20050727
  Serious: Yes (Other)
  Sender: FDA-Public Use
  Company Number: 05-03-0433

PATIENT
  Age: 66 Year
  Sex: Male

DRUGS (12)
  1. METRONIDAZOLE [Suspect]
     Indication: TOOTH DISORDER
     Dosage: 400MG TDS ORAL
     Route: 048
     Dates: start: 20041117, end: 20041119
  2. LANTUS [Suspect]
     Indication: DIABETES MELLITUS
     Dosage: INTRAMUSCULAR
     Route: 030
     Dates: start: 20040701
  3. METFORMIN [Concomitant]
  4. PIROXICAM [Concomitant]
  5. ATORVASTATIN CALCIUM [Concomitant]
  6. ASPIRIN [Concomitant]
  7. SILDENAFIL [Concomitant]
  8. LOSARTAN POTASSIUM [Concomitant]
  9. COPROXAMOL [Concomitant]
  10. AMOXICILLIN [Concomitant]
  11. NASONEX [Concomitant]
  12. NASEPTIN [Concomitant]

REACTIONS (3)
  - BLOOD PRESSURE INCREASED [None]
  - DIABETES MELLITUS INADEQUATE CONTROL [None]
  - HYPOGLYCAEMIA [None]
